FAERS Safety Report 7907686-5 (Version None)
Quarter: 2011Q4

REPORT INFORMATION
  Report Type: 
  Country: None (occurrence: None)
  Receive Date: 20111109
  Receipt Date: 20111109
  Transmission Date: 20120403
  Serious: Yes (Life-Threatening, Hospitalization, Other)
  Sender: FDA-Public Use
  Company Number: None

PATIENT
  Age: 73 Year
  Sex: Male
  Weight: 147.419 kg

DRUGS (3)
  1. DALIRESP [Suspect]
     Indication: LUNG DISORDER
     Dosage: 1T 1X DAY
     Dates: start: 20111001
  2. DALIRESP [Suspect]
     Indication: LUNG DISORDER
     Dosage: 1T 1X DAY
     Dates: start: 20111002
  3. DALIRESP [Suspect]
     Indication: LUNG DISORDER
     Dosage: 1T 1X DAY
     Dates: start: 20110929

REACTIONS (12)
  - DYSPEPSIA [None]
  - DIZZINESS [None]
  - PAIN [None]
  - HEADACHE [None]
  - COLD SWEAT [None]
  - DYSPNOEA [None]
  - MOOD SWINGS [None]
  - DECREASED APPETITE [None]
  - CHEST PAIN [None]
  - ASTHENIA [None]
  - WEIGHT DECREASED [None]
  - ACTIVITIES OF DAILY LIVING IMPAIRED [None]
